FAERS Safety Report 8232057-4 (Version None)
Quarter: 2012Q1

REPORT INFORMATION
  Report Type: 
  Country: None (occurrence: None)
  Receive Date: 20120323
  Receipt Date: 20120315
  Transmission Date: 20120608
  Serious: Yes (Hospitalization, Disabling)
  Sender: FDA-Public Use
  Company Number: US-MERCK-1112USA02423

PATIENT
  Age: 77 Year
  Sex: Female

DRUGS (3)
  1. FOSAMAX PLUS D [Suspect]
     Indication: OSTEOPOROSIS
     Route: 065
  2. FOSAMAX [Suspect]
     Indication: OSTEOPOROSIS
     Route: 048
     Dates: start: 19980101, end: 20110401
  3. FOSAMAX [Suspect]
     Indication: OSTEOPENIA
     Route: 048
     Dates: start: 19980101, end: 20110401

REACTIONS (6)
  - ARTHROPATHY [None]
  - FEMUR FRACTURE [None]
  - HYPERTENSION [None]
  - FALL [None]
  - SPINAL FRACTURE [None]
  - GASTROOESOPHAGEAL REFLUX DISEASE [None]
